FAERS Safety Report 7644519-9 (Version None)
Quarter: 2011Q3

REPORT INFORMATION
  Report Type: 
  Country: None (occurrence: None)
  Receive Date: 20110729
  Receipt Date: 20110720
  Transmission Date: 20111222
  Serious: Yes (Other)
  Sender: FDA-Public Use
  Company Number: US-JNJFOC-20110710852

PATIENT
  Age: 37 Year
  Sex: Male

DRUGS (3)
  1. NASACORT [Concomitant]
     Indication: PRODUCT USED FOR UNKNOWN INDICATION
     Route: 065
  2. ZYRTEC [Suspect]
     Indication: FOOD ALLERGY
     Route: 048
     Dates: start: 20100101, end: 20110717
  3. ZYRTEC [Suspect]
     Indication: ALLERGIC RESPIRATORY DISEASE
     Route: 048
     Dates: start: 20100101, end: 20110717

REACTIONS (3)
  - PRURITUS GENERALISED [None]
  - WITHDRAWAL SYNDROME [None]
  - ERYTHEMA [None]
